FAERS Safety Report 10554116 (Version 1)
Quarter: 2014Q4

REPORT INFORMATION
  Report Type: Spontaneous
  Country: US (occurrence: None)
  Receive Date: 20141028
  Receipt Date: 20141028
  Transmission Date: 20150529
  Serious: Yes (Hospitalization)
  Sender: FDA-Public Use
  Company Number: KAD201410-001303

PATIENT
  Sex: Female

DRUGS (3)
  1. INCIVEK (TEALPREVIR (TEALPREVIR) [Concomitant]
  2. RIBAVIRIN (RIBAVIRIN) [Suspect]
     Active Substance: RIBAVIRIN
     Indication: HEPATITIS C
     Dosage: DISCONTINUED 8 WEEKS EARLY
     Dates: start: 201211
  3. INTERFERON ALFACON-1 [Suspect]
     Active Substance: INTERFERON ALFACON-1
     Indication: HEPATITIS C
     Dates: start: 201211

REACTIONS (2)
  - Thrombosis [None]
  - Pyrexia [None]
